FAERS Safety Report 16411551 (Version 1)
Quarter: 2019Q2

REPORT INFORMATION
  Report Type: Spontaneous
  Country: US (occurrence: US)
  Receive Date: 20190610
  Receipt Date: 20190610
  Transmission Date: 20190711
  Serious: Yes (Other)
  Sender: FDA-Public Use
  Company Number: US-EDGEWELL PERSONAL CARE, LLC-2068027

PATIENT
  Age: 19 Month
  Sex: Female

DRUGS (2)
  1. MULTIVITAMIN [Concomitant]
     Active Substance: VITAMINS
  2. BANANA BOAT (TITANIUM DIOXIDE\ZINC OXIDE) [Suspect]
     Active Substance: TITANIUM DIOXIDE\ZINC OXIDE
     Indication: PROPHYLAXIS AGAINST SOLAR RADIATION
     Route: 061
     Dates: start: 20190526, end: 20190526

REACTIONS (4)
  - Burns second degree [Recovering/Resolving]
  - Vomiting [Recovering/Resolving]
  - Heavy exposure to ultraviolet light [Recovering/Resolving]
  - Diarrhoea [Recovering/Resolving]

NARRATIVE: CASE EVENT DATE: 20190526
